FAERS Safety Report 23431424 (Version 3)
Quarter: 2024Q2

REPORT INFORMATION
  Report Type: Spontaneous
  Country: JP (occurrence: None)
  Receive Date: 20240123
  Receipt Date: 20240625
  Transmission Date: 20240715
  Serious: Yes (Other)
  Sender: FDA-Public Use
  Company Number: 2024A015462

PATIENT
  Age: 60 Year
  Sex: Male

DRUGS (7)
  1. IMFINZI [Suspect]
     Active Substance: DURVALUMAB
     Indication: Non-small cell lung cancer
     Dosage: DOSE UNKNOWN
     Route: 041
     Dates: start: 20231010, end: 20231025
  2. IMFINZI [Suspect]
     Active Substance: DURVALUMAB
     Indication: Non-small cell lung cancer
     Dosage: DOSE UNKNOWN
     Route: 041
  3. IMFINZI [Suspect]
     Active Substance: DURVALUMAB
     Indication: Non-small cell lung cancer
     Route: 041
  4. IMJUDO [Suspect]
     Active Substance: TREMELIMUMAB\TREMELIMUMAB-ACTL
     Indication: Non-small cell lung cancer
     Dosage: DOSE UNKNOWN
     Route: 041
     Dates: start: 20231010, end: 20231025
  5. ATOVAQUONE [Suspect]
     Active Substance: ATOVAQUONE
     Dosage: DOSE UNKNOWN
  6. CARBOPLATIN [Concomitant]
     Active Substance: CARBOPLATIN
     Indication: Non-small cell lung cancer
     Dosage: DOSE UNKNOWN
     Route: 065
     Dates: start: 20231010
  7. PACLITAXEL [Concomitant]
     Active Substance: PACLITAXEL
     Indication: Non-small cell lung cancer
     Dosage: DOSE UNKNOWN
     Dates: start: 20231010

REACTIONS (2)
  - Immune-mediated hepatic disorder [Unknown]
  - Immune-mediated nephritis [Recovering/Resolving]

NARRATIVE: CASE EVENT DATE: 20231025
